FAERS Safety Report 19964034 (Version 1)
Quarter: 2021Q4

REPORT INFORMATION
  Report Type: Spontaneous
  Country: US (occurrence: US)
  Receive Date: 20211013
  Receipt Date: 20211013
  Transmission Date: 20220303
  Serious: No
  Sender: FDA-Public Use
  Company Number: None

PATIENT
  Age: 70 Year
  Sex: Female
  Weight: 74.84 kg

DRUGS (19)
  1. KESIMPTA [Suspect]
     Active Substance: OFATUMUMAB
     Indication: Multiple sclerosis
     Dosage: ?          QUANTITY:1 DF DOSAGE FORM;
     Dates: start: 20211006
  2. NEXLIZET [Concomitant]
     Active Substance: BEMPEDOIC ACID\EZETIMIBE
  3. MYRBETRIQ [Concomitant]
     Active Substance: MIRABEGRON
  4. GABAPENTIN [Concomitant]
     Active Substance: GABAPENTIN
  5. CARVEDILOL [Concomitant]
     Active Substance: CARVEDILOL
  6. VALSARTAN AND HYDROCHLOROTHIAZIDE [Concomitant]
     Active Substance: HYDROCHLOROTHIAZIDE\VALSARTAN
  7. CYCLOBENZAPRINE [Concomitant]
     Active Substance: CYCLOBENZAPRINE
  8. BACLOFEN [Concomitant]
     Active Substance: BACLOFEN
  9. OMEPRAZOLE [Concomitant]
     Active Substance: OMEPRAZOLE
  10. LIVALO [Concomitant]
     Active Substance: PITAVASTATIN CALCIUM
  11. ACETAMINOPHEN\HYDROCODONE [Concomitant]
     Active Substance: ACETAMINOPHEN\HYDROCODONE
  12. LOW DOSE ASPIRIN [Concomitant]
     Active Substance: ASPIRIN
  13. IRON [Concomitant]
     Active Substance: IRON
  14. TYLENOL [Concomitant]
     Active Substance: ACETAMINOPHEN
  15. FISH OIL [Concomitant]
     Active Substance: FISH OIL
  16. MINERALS\VITAMINS [Concomitant]
     Active Substance: MINERALS\VITAMINS
  17. VITAMIN D3 [Concomitant]
     Active Substance: CHOLECALCIFEROL
  18. COENZYME Q10 [Concomitant]
     Active Substance: DIETARY SUPPLEMENT\UBIDECARENONE
  19. PreserVision AREDS 2 with Lutein [Concomitant]

REACTIONS (6)
  - Pyrexia [None]
  - Chills [None]
  - Nausea [None]
  - Headache [None]
  - Pain [None]
  - Dizziness [None]
